FAERS Safety Report 4624510-7 (Version None)
Quarter: 2005Q2

REPORT INFORMATION
  Report Type: 
  Country: None (occurrence: None)
  Receive Date: 20050325
  Receipt Date: 20050201
  Transmission Date: 20051028
  Serious: No
  Sender: FDA-Public Use
  Company Number: USA050189467

PATIENT
  Age: 76 Year
  Sex: Female

DRUGS (4)
  1. FORTEO [Suspect]
     Indication: OSTEOPOROSIS
     Dosage: 20 UG/1 DAY
     Dates: start: 20050127, end: 20050128
  2. MIACALCIN [Concomitant]
  3. ACIPHEX [Concomitant]
  4. METAMUCIL (PLANTAGO OVATA) [Concomitant]

REACTIONS (11)
  - BURNING SENSATION [None]
  - DIZZINESS [None]
  - HEADACHE [None]
  - HYPOAESTHESIA [None]
  - HYPOAESTHESIA ORAL [None]
  - NAUSEA [None]
  - PHARYNGEAL HYPOAESTHESIA [None]
  - PRURITUS [None]
  - RASH GENERALISED [None]
  - SUDDEN HEARING LOSS [None]
  - TINNITUS [None]
